FAERS Safety Report 11453060 (Version 1)
Quarter: 2015Q3

REPORT INFORMATION
  Report Type: Spontaneous
  Country: US (occurrence: US)
  Receive Date: 20150831
  Receipt Date: 20150831
  Transmission Date: 20151125
  Serious: No
  Sender: FDA-Public Use
  Company Number: US-ELI_LILLY_AND_COMPANY-US200908004730

PATIENT
  Sex: Female
  Weight: 61.22 kg

DRUGS (2)
  1. CYMBALTA [Suspect]
     Active Substance: DULOXETINE HYDROCHLORIDE
     Indication: POSTPARTUM DEPRESSION
     Dosage: 60 MG, UNK
     Dates: start: 2008, end: 2009
  2. CYMBALTA [Suspect]
     Active Substance: DULOXETINE HYDROCHLORIDE
     Dosage: 30 MG, UNK
     Dates: start: 2009, end: 200908

REACTIONS (18)
  - Suicidal ideation [Unknown]
  - Crying [Unknown]
  - Paraesthesia [Unknown]
  - Anger [Unknown]
  - Constipation [Unknown]
  - Irritability [Unknown]
  - Anhedonia [Unknown]
  - Photophobia [Unknown]
  - Headache [Unknown]
  - Feeling abnormal [Unknown]
  - Phonophobia [Unknown]
  - Drug withdrawal syndrome [Unknown]
  - Nausea [Unknown]
  - Chills [Unknown]
  - Vomiting [Not Recovered/Not Resolved]
  - Decreased appetite [Unknown]
  - Night sweats [Unknown]
  - Panic attack [Unknown]

NARRATIVE: CASE EVENT DATE: 2009
